FAERS Safety Report 6612786-6 (Version None)
Quarter: 2010Q1

REPORT INFORMATION
  Report Type: 
  Country: None (occurrence: None)
  Receive Date: 20100303
  Receipt Date: 20100217
  Transmission Date: 20100710
  Serious: Yes (Hospitalization, Other)
  Sender: FDA-Public Use
  Company Number: US-ELI_LILLY_AND_COMPANY-US201002005480

PATIENT
  Sex: Female

DRUGS (12)
  1. FORTEO [Suspect]
     Indication: OSTEOPOROSIS
     Dosage: 20 UG, DAILY (1/D)
     Dates: start: 20090501
  2. CYMBALTA [Concomitant]
     Dosage: 60 MG, DAILY (1/D)
  3. AXID [Concomitant]
  4. SIMVASTATIN [Concomitant]
     Dosage: 5 MG, DAILY (1/D)
  5. CALMAG D [Concomitant]
     Dosage: 1800 MG, DAILY (1/D)
  6. VITAMIN D [Concomitant]
     Dosage: 600 IU, DAILY (1/D)
  7. VITAMIN D [Concomitant]
     Dosage: 50000 U, WEEKLY (1/W) FOR 3 MONTHS
  8. NEVANAC [Concomitant]
     Dosage: UNK, DAILY (1/D)
     Route: 047
  9. TOBRAMYCIN [Concomitant]
     Dosage: UNK, DAILY (1/D)
     Route: 047
  10. SULFAMETHOXAZOLE AND TRIMETHOPRIM [Concomitant]
     Dosage: UNK, DAILY (1/D)
  11. TRAMADOL HCL [Concomitant]
     Dosage: UNK, AS NEEDED
  12. DARVOCET-N 100 [Concomitant]
     Dosage: UNK, AS NEEDED

REACTIONS (4)
  - ABDOMINAL PAIN [None]
  - CATARACT [None]
  - FALL [None]
  - ULNA FRACTURE [None]
